FAERS Safety Report 7949151-5 (Version None)
Quarter: 2011Q4

REPORT INFORMATION
  Report Type: 
  Country: None (occurrence: None)
  Receive Date: 20111123
  Receipt Date: 20111115
  Transmission Date: 20120403
  Serious: Yes (Other)
  Sender: FDA-Public Use
  Company Number: ACO_28084_2011

PATIENT
  Age: 65 Year
  Sex: Female
  Weight: 54.4 kg

DRUGS (16)
  1. DICYCLOMINE /00068601/ (DICYCLOVERINE) [Concomitant]
  2. AMIRTIPTYLINE (AMITRIPTYLINE) [Concomitant]
  3. NEXIUM [Concomitant]
  4. CARBAMAZEPINE [Concomitant]
  5. DIAZEPAM [Concomitant]
  6. CHLORZOXAZONE [Concomitant]
  7. IMITREX /01044801/ (SUMATRIPTAN) [Concomitant]
  8. CILOSTAZOL [Concomitant]
  9. AMPYRA [Suspect]
     Indication: GAIT DISTURBANCE
     Dosage: 10 MG, BID, ORAL
     Route: 048
     Dates: start: 20110301
  10. PRAVASTATIN [Concomitant]
  11. PENTOXIFYLLINE [Concomitant]
  12. HYDROCODONE BITARTRATE [Concomitant]
  13. GABAPENTIN [Concomitant]
  14. SELENIUM (SELENIUM) [Concomitant]
  15. SAVELLA [Concomitant]
  16. AMITIZA [Concomitant]

REACTIONS (2)
  - URINARY TRACT INFECTION [None]
  - NEPHROLITHIASIS [None]
